FAERS Safety Report 18022962 (Version 2)
Quarter: 2021Q1

REPORT INFORMATION
  Report Type: Spontaneous
  Country: US (occurrence: US)
  Receive Date: 20200715
  Receipt Date: 20210114
  Transmission Date: 20210419
  Serious: No
  Sender: FDA-Public Use
  Company Number: US-ALLERGAN-2024113US

PATIENT
  Sex: Female
  Weight: 49.9 kg

DRUGS (2)
  1. UBRELVY [Suspect]
     Active Substance: UBROGEPANT
     Indication: MIGRAINE
     Dosage: 100 MG
     Route: 065
     Dates: end: 202005
  2. UBRELVY [Suspect]
     Active Substance: UBROGEPANT
     Dosage: 50 MG
     Route: 065
     Dates: start: 202002

REACTIONS (2)
  - Nausea [Recovered/Resolved]
  - Therapeutic response decreased [Unknown]
